FAERS Safety Report 23510359 (Version 3)
Quarter: 2024Q3

REPORT INFORMATION
  Report Type: Spontaneous
  Country: US (occurrence: US)
  Receive Date: 20240211
  Receipt Date: 20240717
  Transmission Date: 20241016
  Serious: No
  Sender: BIOGEN
  Company Number: US-BIOGEN-2023BI01240568

PATIENT
  Sex: Female

DRUGS (4)
  1. SKYCLARYS [Suspect]
     Active Substance: OMAVELOXOLONE
     Indication: Friedreich^s ataxia
     Dosage: 150 MILLIGRAM, QD
     Route: 050
     Dates: start: 20230715, end: 20231103
  2. SKYCLARYS [Suspect]
     Active Substance: OMAVELOXOLONE
     Dosage: 50 MILLIGRAM (1 CAPSULE)
     Route: 050
     Dates: start: 20231103
  3. SKYCLARYS [Suspect]
     Active Substance: OMAVELOXOLONE
     Dosage: 150MG BY MOUTH ONCE DAILY
     Route: 050
     Dates: start: 20230715
  4. SKYCLARYS [Suspect]
     Active Substance: OMAVELOXOLONE
     Dosage: 150MG BY MOUTH ONCE DAILY
     Route: 050
     Dates: start: 20230715

REACTIONS (8)
  - Nasal congestion [Unknown]
  - Illness [Unknown]
  - Incorrect dosage administered [Unknown]
  - Atrophy [Unknown]
  - Muscle spasms [Unknown]
  - Oropharyngeal pain [Unknown]
  - Abdominal pain upper [Unknown]
  - Fatigue [Unknown]

NARRATIVE: CASE EVENT DATE: 20230101
